FAERS Safety Report 8782078 (Version 3)
Quarter: 2014Q2

REPORT INFORMATION
  Report Type: Spontaneous
  Country: US (occurrence: US)
  Receive Date: 20120913
  Receipt Date: 20140415
  Transmission Date: 20141212
  Serious: Yes (Other)
  Sender: FDA-Public Use
  Company Number: US-BAYER-2012-094419

PATIENT
  Age: 24 Year
  Sex: Female
  Weight: 92.97 kg

DRUGS (4)
  1. YAZ [Suspect]
     Indication: CONTRACEPTION
     Dosage: UNK
     Dates: start: 2005, end: 2008
  2. YAZ [Suspect]
     Indication: ACNE
  3. ADVIL [Concomitant]
  4. VITAMIN C [Concomitant]
     Dosage: UNK
     Dates: start: 2007

REACTIONS (11)
  - Hepatobiliary scan abnormal [None]
  - Cholecystitis [None]
  - Emotional distress [None]
  - Injury [None]
  - Abdominal pain [None]
  - Anxiety [None]
  - Psychological trauma [None]
  - Fear [None]
  - Anhedonia [None]
  - Nausea [None]
  - Dyspnoea [None]
